FAERS Safety Report 24310811 (Version 1)
Quarter: 2024Q3

REPORT INFORMATION
  Report Type: Spontaneous
  Country: US (occurrence: US)
  Receive Date: 20240912
  Receipt Date: 20240912
  Transmission Date: 20241016
  Serious: Yes (Other)
  Sender: SANOFI AVENTIS
  Company Number: US-SA-2024SA262521

PATIENT
  Age: 39 Year
  Sex: Female
  Weight: 48.8 kg

DRUGS (18)
  1. DUPIXENT [Suspect]
     Active Substance: DUPILUMAB
     Indication: Asthma
     Dosage: 300 MG, QOW
     Route: 058
  2. DUPIXENT [Suspect]
     Active Substance: DUPILUMAB
     Indication: Dermatitis atopic
  3. MEDROL [Concomitant]
     Active Substance: METHYLPREDNISOLONE
  4. COLCHICINE [Concomitant]
     Active Substance: COLCHICINE
  5. CROMOLYN SODIUM [Concomitant]
     Active Substance: CROMOLYN SODIUM
  6. SPIRIVA RESPIMAT [Concomitant]
     Active Substance: TIOTROPIUM BROMIDE
  7. MAGNESIUM [Concomitant]
     Active Substance: MAGNESIUM
  8. ZAFIRLUKAST [Concomitant]
     Active Substance: ZAFIRLUKAST
  9. VITAMINS [Concomitant]
     Active Substance: VITAMINS
  10. FAMOTIDINE [Concomitant]
     Active Substance: FAMOTIDINE
  11. RYALTRIS [Concomitant]
     Active Substance: MOMETASONE FUROATE MONOHYDRATE\OLOPATADINE HYDROCHLORIDE
  12. KETOTIFEN FUMARATE [Concomitant]
     Active Substance: KETOTIFEN FUMARATE
  13. SUCRAID [Concomitant]
     Active Substance: SACROSIDASE
  14. CHOLECALCIFEROL [Concomitant]
     Active Substance: CHOLECALCIFEROL
  15. FISH OIL [Concomitant]
     Active Substance: FISH OIL
  16. CALCIUM [Concomitant]
     Active Substance: CALCIUM
  17. VITAMIN D3 [Concomitant]
     Active Substance: CHOLECALCIFEROL
  18. EPINEPHRINE [EPINEPHRINE HYDROCHLORIDE] [Concomitant]

REACTIONS (3)
  - Angioedema [Unknown]
  - Swelling [Unknown]
  - COVID-19 [Unknown]

NARRATIVE: CASE EVENT DATE: 20240501
